FAERS Safety Report 5509889-6 (Version None)
Quarter: 2007Q4

REPORT INFORMATION
  Report Type: 
  Country: None (occurrence: None)
  Receive Date: 20071108
  Receipt Date: 20071031
  Transmission Date: 20080405
  Serious: Yes (Other)
  Sender: FDA-Public Use
  Company Number: TW-AVENTIS-200715053GDDC

PATIENT
  Age: 28 Year
  Sex: Female

DRUGS (4)
  1. METHOTREXATE [Suspect]
     Indication: T-CELL LYMPHOMA
     Dosage: DOSE: 12 MG
     Route: 037
     Dates: start: 20040915, end: 20041012
  2. HYDROCORTISONE [Suspect]
     Indication: T-CELL LYMPHOMA
     Dosage: DOSE: 24 MG
     Route: 037
     Dates: start: 20040915, end: 20041012
  3. CYTARABINE [Concomitant]
     Indication: T-CELL LYMPHOMA
     Dosage: DOSE: 30 MG
     Route: 037
     Dates: start: 20040915, end: 20041012
  4. RADIOTHERAPY [Concomitant]
     Dosage: DOSE: 3000CGY IN 20 FRACTIONS
     Dates: start: 20041112, end: 20041119

REACTIONS (1)
  - MYELOPATHY [None]
